FAERS Safety Report 7831887-8 (Version None)
Quarter: 2011Q4

REPORT INFORMATION
  Report Type: 
  Country: None (occurrence: None)
  Receive Date: 20111021
  Receipt Date: 20111010
  Transmission Date: 20120403
  Serious: Yes (Hospitalization)
  Sender: FDA-Public Use
  Company Number: ES-ELI_LILLY_AND_COMPANY-ES201109001900

PATIENT
  Sex: Male
  Weight: 80 kg

DRUGS (8)
  1. KYTRIL [Concomitant]
     Indication: PROPHYLAXIS
     Dosage: UNK
     Dates: start: 20110228
  2. DEXAMETHASONE [Concomitant]
     Indication: PROPHYLAXIS
     Dosage: UNK
     Dates: start: 20110227
  3. CAPOTEN [Concomitant]
     Indication: HYPERTENSION
     Dosage: UNK
     Dates: start: 20110228
  4. CISPLATIN [Suspect]
     Indication: NON-SMALL CELL LUNG CANCER
     Dosage: 75 MG/M2, ON DAY 1 EVERY 21 DAYS
     Route: 042
     Dates: start: 20110228, end: 20110505
  5. BEVACIZUMAB [Suspect]
     Indication: NON-SMALL CELL LUNG CANCER
     Dosage: 7.5 MG/KG, ON DAY 1 EVERY 21 DAYS
     Route: 065
     Dates: start: 20110228
  6. FOLIC ACID [Concomitant]
     Indication: PROPHYLAXIS
     Dosage: UNK
     Dates: start: 20110222
  7. VITAMIN B-12 [Concomitant]
     Indication: PROPHYLAXIS
     Dosage: UNK
     Dates: start: 20110222
  8. PEMETREXED [Suspect]
     Indication: NON-SMALL CELL LUNG CANCER
     Dosage: 500 MG/M2, ON DAY 1 EVERY 21 DAYS
     Route: 042
     Dates: start: 20110228

REACTIONS (2)
  - PANCYTOPENIA [None]
  - DYSPNOEA [None]
